FAERS Safety Report 13377609 (Version 1)
Quarter: 2017Q1

REPORT INFORMATION
  Report Type: Spontaneous
  Country: SE (occurrence: SE)
  Receive Date: 20170328
  Receipt Date: 20170328
  Transmission Date: 20170429
  Serious: Yes (Other)
  Sender: FDA-Public Use
  Company Number: SE-PFIZER INC-2017124137

PATIENT
  Sex: Male

DRUGS (4)
  1. OMEPRAZOLE. [Concomitant]
     Active Substance: OMEPRAZOLE
  2. NOVALUCOL /01226301/ [Concomitant]
  3. TOLTERODINE TARTRATE. [Suspect]
     Active Substance: TOLTERODINE TARTRATE
     Indication: MICTURITION URGENCY
     Dosage: 4 MG,  TAKEN EITHER AS 2 MG TWICE DAILY, OR 4 MG ONCE DAILY
     Dates: end: 201701
  4. DETRUSITOL [Suspect]
     Active Substance: TOLTERODINE TARTRATE
     Indication: MICTURITION URGENCY
     Dosage: 4 MG, TAKEN EITHER AS 2 MG TWICE DAILY, OR 4 MG ONCE DAILY
     Dates: end: 201701

REACTIONS (5)
  - Cognitive disorder [Recovered/Resolved]
  - Sleep disorder [Recovered/Resolved]
  - Feeling abnormal [Recovered/Resolved]
  - Mental impairment [Recovered/Resolved]
  - Memory impairment [Recovered/Resolved]
